FAERS Safety Report 11098331 (Version 2)
Quarter: 2019Q2

REPORT INFORMATION
  Report Type: Report from Study
  Country: CA (occurrence: CA)
  Receive Date: 20150507
  Receipt Date: 20190620
  Transmission Date: 20190711
  Serious: Yes (Hospitalization)
  Sender: FDA-Public Use
  Company Number: PHHY2015CA053531

PATIENT
  Age: 6 Year
  Sex: Female

DRUGS (1)
  1. DESFERAL [Suspect]
     Active Substance: DEFEROXAMINE MESYLATE
     Indication: THALASSAEMIA
     Route: 058

REACTIONS (8)
  - Gastroenteritis viral [Unknown]
  - Vomiting [Unknown]
  - Influenza [Unknown]
  - Feeding disorder [Unknown]
  - Diarrhoea [Unknown]
  - Hypophagia [Unknown]
  - Malaise [Unknown]
  - Abdominal pain upper [Unknown]

NARRATIVE: CASE EVENT DATE: 20150426
